FAERS Safety Report 9275945 (Version 3)
Quarter: 2013Q2

REPORT INFORMATION
  Report Type: Spontaneous
  Country: US (occurrence: US)
  Receive Date: 20130507
  Receipt Date: 20130513
  Transmission Date: 20140414
  Serious: No
  Sender: FDA-Public Use
  Company Number: US-009507513-1305USA000536

PATIENT
  Age: 31 Year
  Sex: Female
  Weight: 68.48 kg

DRUGS (2)
  1. IMPLANON [Suspect]
     Indication: CONTRACEPTION
     Dosage: 1 ROD
     Route: 059
     Dates: start: 20100525
  2. CODEINE [Suspect]

REACTIONS (3)
  - Weight increased [Unknown]
  - Nausea [Unknown]
  - Medical device complication [Unknown]
